FAERS Safety Report 9230521 (Version 3)
Quarter: 2013Q2

REPORT INFORMATION
  Report Type: Spontaneous
  Country: IT (occurrence: IT)
  Receive Date: 20130415
  Receipt Date: 20130510
  Transmission Date: 20140414
  Serious: Yes (Hospitalization)
  Sender: FDA-Public Use
  Company Number: IT-BRISTOL-MYERS SQUIBB COMPANY-18751867

PATIENT
  Age: 65 Year
  Sex: Male

DRUGS (17)
  1. ORENCIA FOR INJ 250 MG/VIAL [Suspect]
     Indication: RHEUMATOID ARTHRITIS
     Dosage: 250 MG POWDER FOR SOLUTION FOR INFUSION?LAST DOSE: 10JAN2013
     Route: 042
     Dates: start: 20090219
  2. CARDIOASPIRIN [Concomitant]
     Indication: MYOCARDIAL INFARCTION
     Dosage: TABS
     Route: 048
  3. PERINDOPRIL [Concomitant]
     Indication: HYPERTENSION
     Route: 048
  4. OMEPRAZOLE [Concomitant]
     Indication: PROPHYLAXIS AGAINST GASTROINTESTINAL ULCER
     Route: 048
  5. PARACETAMOL [Concomitant]
     Indication: ANALGESIC THERAPY
     Dosage: TABS
     Route: 048
  6. RIFAXIMIN [Concomitant]
     Dosage: 4/UNIT
     Route: 048
  7. LASIX [Concomitant]
     Indication: MYOCARDIAL INFARCTION
     Dosage: LASIX ^25 MG TABLETS^
     Route: 048
  8. DELTACORTENE [Concomitant]
     Indication: RHEUMATOID ARTHRITIS
     Dosage: TABS
     Route: 048
  9. METHOTREXATE [Concomitant]
     Indication: RHEUMATOID ARTHRITIS
     Dosage: 15MG/2ML SOLUTION FOR INJECTION
     Route: 030
  10. ESAPENT [Concomitant]
     Indication: DYSLIPIDAEMIA
     Dosage: 1 GRAM CAPS
     Route: 048
  11. CARDICOR [Concomitant]
     Indication: ISCHAEMIC HEART DISEASE PROPHYLAXIS
     Dosage: TABS
     Route: 048
  12. FOLINA [Concomitant]
     Indication: ANAEMIA PROPHYLAXIS
     Dosage: 5 MG CAPS
     Route: 048
  13. METFONORM [Concomitant]
     Indication: TYPE 2 DIABETES MELLITUS
     Dosage: 500 MG TABLETS
     Route: 048
  14. VOLTAREN [Concomitant]
     Indication: RHEUMATOID ARTHRITIS
     Dosage: TABS
     Route: 048
  15. CRESTOR [Concomitant]
     Indication: DYSLIPIDAEMIA
     Route: 048
  16. LYRICA [Concomitant]
     Indication: DIABETIC NEUROPATHY
     Route: 048
  17. VENITRIN [Concomitant]
     Indication: ISCHAEMIC HEART DISEASE PROPHYLAXIS
     Dosage: 10MG/24H TRANSDERMAL PATCHES
     Route: 062

REACTIONS (2)
  - Diverticulitis [Recovered/Resolved]
  - Rectal haemorrhage [Recovered/Resolved]
